FAERS Safety Report 5990969-6 (Version None)
Quarter: 2008Q4

REPORT INFORMATION
  Report Type: 
  Country: None (occurrence: None)
  Receive Date: 20081211
  Receipt Date: 20081204
  Transmission Date: 20090506
  Serious: Yes (Disabling)
  Sender: FDA-Public Use
  Company Number: LB-GENENTECH-273163

PATIENT
  Age: 60 Year
  Sex: Female

DRUGS (5)
  1. ACTIVASE [Suspect]
     Indication: PERIPHERAL ARTERIAL OCCLUSIVE DISEASE
     Dosage: UNK
     Route: 013
  2. HEPARIN [Concomitant]
     Indication: ARTERIAL OCCLUSIVE DISEASE
     Dosage: UNK
  3. HEPARIN [Concomitant]
  4. CLOPIDOGREL [Concomitant]
     Indication: ARTERIAL OCCLUSIVE DISEASE
     Dosage: UNK
  5. CLOPIDOGREL [Concomitant]

REACTIONS (2)
  - AMPUTATION [None]
  - DRUG INEFFECTIVE [None]
